FAERS Safety Report 16662729 (Version 2)
Quarter: 2019Q3

REPORT INFORMATION
  Report Type: Spontaneous
  Country: KY (occurrence: KY)
  Receive Date: 20190802
  Receipt Date: 20190904
  Transmission Date: 20191004
  Serious: No
  Sender: FDA-Public Use
  Company Number: KY-ABBVIE-19K-030-2875231-00

PATIENT
  Sex: Female
  Weight: 70.82 kg

DRUGS (5)
  1. HUMIRA [Suspect]
     Active Substance: ADALIMUMAB
     Indication: RHEUMATOID ARTHRITIS
     Route: 058
     Dates: start: 201810, end: 201903
  2. METHOTREXATE (METHOTREXATE SODIUM) [Concomitant]
     Active Substance: METHOTREXATE SODIUM
     Indication: PRODUCT USED FOR UNKNOWN INDICATION
     Dates: start: 201809
  3. HUMIRA [Suspect]
     Active Substance: ADALIMUMAB
     Indication: RHEUMATOID ARTHRITIS
     Route: 058
     Dates: start: 201010
  4. PREDNISOLONE. [Concomitant]
     Active Substance: PREDNISOLONE
     Indication: PRODUCT USED FOR UNKNOWN INDICATION
     Dates: start: 201809
  5. ARCOXIA [Concomitant]
     Active Substance: ETORICOXIB
     Indication: PRODUCT USED FOR UNKNOWN INDICATION

REACTIONS (2)
  - Blood immunoglobulin G increased [Unknown]
  - Blood immunoglobulin M increased [Unknown]
